FAERS Safety Report 6791402-7 (Version None)
Quarter: 2010Q2

REPORT INFORMATION
  Report Type: 
  Country: None (occurrence: None)
  Receive Date: 20100621
  Receipt Date: 20100609
  Transmission Date: 20101027
  Serious: Yes (Hospitalization)
  Sender: FDA-Public Use
  Company Number: B0661154A

PATIENT
  Age: 79 Year
  Sex: Female

DRUGS (2)
  1. PROPAFENONE HYDROCHLORIDE [Suspect]
     Indication: ARRHYTHMIA
     Dosage: 600MG
     Dates: start: 20061112
  2. COREG [Suspect]
     Indication: HYPERTENSION

REACTIONS (10)
  - ANTI-THYROID ANTIBODY POSITIVE [None]
  - AORTIC VALVE INCOMPETENCE [None]
  - ATRIAL FIBRILLATION [None]
  - ATRIOVENTRICULAR BLOCK FIRST DEGREE [None]
  - BUNDLE BRANCH BLOCK LEFT [None]
  - ELECTROCARDIOGRAM ABNORMAL [None]
  - GLYCOSYLATED HAEMOGLOBIN INCREASED [None]
  - MITRAL VALVE INCOMPETENCE [None]
  - SYNCOPE [None]
  - THYROGLOBULIN INCREASED [None]
